FAERS Safety Report 10671883 (Version 1)
Quarter: 2014Q4

REPORT INFORMATION
  Report Type: Spontaneous
  Country: US (occurrence: None)
  Receive Date: 20141222
  Receipt Date: 20141222
  Transmission Date: 20150529
  Serious: Yes (Other)
  Sender: FDA-Public Use
  Company Number: None

PATIENT
  Age: 74 Year
  Sex: Female
  Weight: 57.15 kg

DRUGS (1)
  1. COLD-EEZE DAYTIME/NIGHTTIME [Suspect]
     Active Substance: HOMEOPATHICS
     Indication: UPPER RESPIRATORY TRACT INFECTION
     Dosage: 10 MG OF MELATIONIN IN NIGHTIME PRODUCT
     Dates: start: 20141216, end: 20141217

REACTIONS (1)
  - Syncope [None]

NARRATIVE: CASE EVENT DATE: 20141217
